FAERS Safety Report 17812554 (Version 1)
Quarter: 2020Q2

REPORT INFORMATION
  Report Type: Report from Study
  Country: AU (occurrence: AU)
  Receive Date: 20200521
  Receipt Date: 20200521
  Transmission Date: 20200714
  Serious: Yes (Other)
  Sender: FDA-Public Use
  Company Number: AU-REGENERON PHARMACEUTICALS, INC.-2020-38829

PATIENT

DRUGS (1)
  1. EYLEA [Suspect]
     Active Substance: AFLIBERCEPT
     Indication: NEOVASCULAR AGE-RELATED MACULAR DEGENERATION
     Dosage: BILATERAL INJECTION; DOSE, FREQUENCY AND TOTAL NUMBER OF DOSES NOT REPORTED
     Route: 031
     Dates: start: 20171201

REACTIONS (5)
  - Eye infection [Unknown]
  - Intraocular lens implant [Unknown]
  - Eye disorder [Unknown]
  - Visual impairment [Unknown]
  - Eye disorder [Recovered/Resolved]
